FAERS Safety Report 17823805 (Version 1)
Quarter: 2020Q2

REPORT INFORMATION
  Report Type: Spontaneous
  Country: US (occurrence: US)
  Receive Date: 20200526
  Receipt Date: 20200526
  Transmission Date: 20200714
  Serious: No
  Sender: FDA-Public Use
  Company Number: US-PFIZER INC-2020206495

PATIENT
  Sex: Male

DRUGS (1)
  1. PHENELZINE SULFATE. [Suspect]
     Active Substance: PHENELZINE SULFATE
     Dosage: UNK

REACTIONS (1)
  - Malaise [Unknown]
